FAERS Safety Report 4401576-0 (Version None)
Quarter: 2004Q3

REPORT INFORMATION
  Report Type: 
  Country: None (occurrence: None)
  Receive Date: 20040714
  Receipt Date: 20040625
  Transmission Date: 20050211
  Serious: Yes (Other)
  Sender: FDA-Public Use
  Company Number: USA040671091

PATIENT
  Age: 63 Year
  Sex: Female
  Weight: 51 kg

DRUGS (13)
  1. FORTEO [Suspect]
     Indication: OSTEOPOROSIS
     Dosage: 20 UG/ 1 DAY
     Dates: start: 20040201
  2. ARICEPT [Concomitant]
  3. LEVOXYL [Concomitant]
  4. CARBATROL [Concomitant]
  5. ESTROGENS CONJUGATED W/MEDROXYPROGESTERONE [Concomitant]
  6. OXYCONTIN [Concomitant]
  7. PREVACID [Concomitant]
  8. NEXIUM [Concomitant]
  9. ASPIRIN TAB [Concomitant]
  10. MULTI-VITAMIN [Concomitant]
  11. ICAPS [Concomitant]
  12. STOOL SOFTENER (DOCUSATE SODIUM) [Concomitant]
  13. CALCIUM WITH VITAMIN D [Concomitant]

REACTIONS (8)
  - BURNING SENSATION [None]
  - CONVULSION [None]
  - DIZZINESS [None]
  - INJECTION SITE STINGING [None]
  - MUSCLE CRAMP [None]
  - NAUSEA [None]
  - PARAESTHESIA [None]
  - PHARMACEUTICAL PRODUCT COMPLAINT [None]
